FAERS Safety Report 9520657 (Version 4)
Quarter: 2013Q4

REPORT INFORMATION
  Report Type: Spontaneous
  Country: JP (occurrence: JP)
  Receive Date: 20130913
  Receipt Date: 20131003
  Transmission Date: 20140711
  Serious: Yes (Hospitalization)
  Sender: FDA-Public Use
  Company Number: JP-ASTRAZENECA-2013SE36380

PATIENT
  Age: 78 Year
  Sex: Male
  Weight: 63 kg

DRUGS (9)
  1. NEXIUM [Suspect]
     Indication: PROPHYLAXIS AGAINST GASTROINTESTINAL ULCER
     Route: 048
     Dates: start: 20130429, end: 20130529
  2. CRESTOR [Suspect]
     Indication: DYSLIPIDAEMIA
     Route: 048
     Dates: end: 20130529
  3. PLAVIX [Suspect]
     Indication: STENT PLACEMENT
     Route: 048
     Dates: start: 20130424, end: 20130606
  4. BAYASPIRIN [Concomitant]
     Route: 048
     Dates: start: 20130424
  5. ALLEGRA [Concomitant]
     Indication: EOSINOPHILIA
     Route: 048
     Dates: start: 20130429
  6. MICARDIS [Concomitant]
     Indication: HYPERTENSION
     Route: 048
  7. SEIBULE [Concomitant]
     Indication: TYPE 2 DIABETES MELLITUS
     Route: 048
  8. AMARYL [Concomitant]
     Indication: TYPE 2 DIABETES MELLITUS
     Route: 048
  9. JANUVIA [Concomitant]
     Indication: TYPE 2 DIABETES MELLITUS
     Route: 048

REACTIONS (1)
  - Eosinophilia [Recovering/Resolving]
